FAERS Safety Report 19974794 (Version 1)
Quarter: 2021Q4

REPORT INFORMATION
  Report Type: Spontaneous
  Country: US (occurrence: US)
  Receive Date: 20211020
  Receipt Date: 20211020
  Transmission Date: 20220303
  Serious: Yes (Other)
  Sender: FDA-Public Use
  Company Number: US-FRESENIUS KABI-FK202111291

PATIENT
  Age: 25 Year
  Sex: Female

DRUGS (4)
  1. IFOSFAMIDE [Suspect]
     Active Substance: IFOSFAMIDE
     Indication: Soft tissue sarcoma
     Dosage: 2.5 G/M2/DAY, DAYS 1-2; NEOADJUVANT CHEMOTHERAPY
     Route: 065
  2. DOXORUBICIN [Concomitant]
     Active Substance: DOXORUBICIN
     Indication: Soft tissue sarcoma
     Dosage: 50 MG/M2 ON DAY 1; NEOADJUVANT CHEMOTHERAPY
     Route: 065
  3. MESNA [Concomitant]
     Active Substance: MESNA
     Indication: Soft tissue sarcoma
     Dosage: RESCUE THERAPY; NEOADJUVANT CHEMOTHERAPY
     Route: 065
  4. CORTICOSTEROID NOS [Concomitant]
     Active Substance: CORTICOSTEROID NOS
     Indication: Maternal therapy to enhance foetal lung maturity
     Dosage: UNSPECIFIED CORTICOSTEROIDS
     Route: 065

REACTIONS (2)
  - Amniotic fluid index decreased [Unknown]
  - Maternal exposure during pregnancy [Unknown]
